FAERS Safety Report 9607504 (Version 2)
Quarter: 2013Q4

REPORT INFORMATION
  Report Type: Spontaneous
  Country: JP (occurrence: JP)
  Receive Date: 20131009
  Receipt Date: 20131128
  Transmission Date: 20140711
  Serious: Yes (Other)
  Sender: FDA-Public Use
  Company Number: JP-JNJFOC-20131003001

PATIENT
  Age: 13 Year
  Sex: 0

DRUGS (6)
  1. DOXORUBICIN HYDROCHLORIDE (DOXIL) [Suspect]
     Indication: OSTEOSARCOMA
     Route: 042
  2. DOXORUBICIN HYDROCHLORIDE [Suspect]
     Indication: OSTEOSARCOMA
     Route: 042
  3. CYCLOPHOSPHAMIDE [Suspect]
     Indication: OSTEOSARCOMA
     Route: 065
  4. ETOPOSIDE [Suspect]
     Indication: OSTEOSARCOMA
     Route: 065
  5. CISPLATIN [Suspect]
     Indication: OSTEOSARCOMA
     Route: 065
  6. RADIOTHERAPY [Suspect]
     Indication: OSTEOSARCOMA
     Route: 065

REACTIONS (2)
  - Thyroid neoplasm [Unknown]
  - Off label use [Unknown]
